FAERS Safety Report 19444629 (Version 1)
Quarter: 2021Q2

REPORT INFORMATION
  Report Type: Report from Study
  Country: US (occurrence: US)
  Receive Date: 20210621
  Receipt Date: 20210621
  Transmission Date: 20210717
  Serious: Yes (Hospitalization, Other)
  Sender: FDA-Public Use
  Company Number: US-MYLANLABS-2020M1057749

PATIENT
  Sex: Male
  Weight: 96 kg

DRUGS (2)
  1. GLATIRAMER ACETATE INJECTION [Suspect]
     Active Substance: GLATIRAMER ACETATE
     Indication: RELAPSING-REMITTING MULTIPLE SCLEROSIS
     Dosage: 40 MILLIGRAM, 3XW, 3 TIMES A WEEK
     Route: 058
  2. GLATIRAMER ACETATE INJECTION [Suspect]
     Active Substance: GLATIRAMER ACETATE
     Dosage: 40 MILLIGRAM, 3XW, 3 TIMES A WEEK
     Route: 058
     Dates: end: 202101

REACTIONS (3)
  - Immunodeficiency [Unknown]
  - Injection site pain [Recovered/Resolved]
  - Urinary tract infection [Not Recovered/Not Resolved]
